FAERS Safety Report 8995360 (Version 1)
Quarter: 2013Q1

REPORT INFORMATION
  Report Type: Spontaneous
  Country: US (occurrence: US)
  Receive Date: 20130103
  Receipt Date: 20130103
  Transmission Date: 20140127
  Serious: No
  Sender: FDA-Public Use
  Company Number: US-ABBOTT-12P-163-0922061-00

PATIENT
  Age: 41 Year
  Sex: Male

DRUGS (2)
  1. SYNTHROID [Suspect]
     Indication: AUTOIMMUNE THYROIDITIS
     Dates: start: 201101
  2. SYNTHROID [Suspect]

REACTIONS (2)
  - Blood thyroid stimulating hormone increased [Recovered/Resolved]
  - Diffuse alopecia [Not Recovered/Not Resolved]
